FAERS Safety Report 25282948 (Version 1)
Quarter: 2025Q2

REPORT INFORMATION
  Report Type: Spontaneous
  Country: FR (occurrence: FR)
  Receive Date: 20250508
  Receipt Date: 20250508
  Transmission Date: 20250716
  Serious: Yes (Death, Other)
  Sender: AUROBINDO
  Company Number: FR-SANDOZ-SDZ2025FR024183

PATIENT
  Age: 90 Year
  Sex: Male

DRUGS (2)
  1. AMIODARONE [Suspect]
     Active Substance: AMIODARONE
     Indication: Product used for unknown indication
     Route: 065
  2. CORDARONE [Suspect]
     Active Substance: AMIODARONE HYDROCHLORIDE
     Indication: Product used for unknown indication
     Route: 065

REACTIONS (23)
  - Death [Fatal]
  - Atrial fibrillation [Unknown]
  - Hypoxia [Unknown]
  - Acute respiratory failure [Unknown]
  - Pulmonary toxicity [Unknown]
  - Dependence on oxygen therapy [Unknown]
  - Condition aggravated [Unknown]
  - Drug dependence [Unknown]
  - Serotonin syndrome [Unknown]
  - Chronic respiratory failure [Unknown]
  - Cardiac failure [Unknown]
  - Respiratory failure [Unknown]
  - Pulmonary fibrosis [Unknown]
  - Hospitalisation [Unknown]
  - Dyspnoea exertional [Unknown]
  - Anxiety disorder [Unknown]
  - Hyperglycaemia [Unknown]
  - Vertigo positional [Unknown]
  - Lung disorder [Unknown]
  - Purpura [Unknown]
  - Respiratory disorder [Unknown]
  - Dyspnoea [Unknown]
  - Insomnia [Unknown]
